FAERS Safety Report 8827520 (Version 1)
Quarter: 2012Q4

REPORT INFORMATION
  Report Type: 
  Country: NL (occurrence: NL)
  Receive Date: 20121008
  Receipt Date: 20121008
  Transmission Date: 20130627
  Serious: Yes (Hospitalization)
  Sender: FDA-Public Use
  Company Number: NL-JNJFOC-20120912957

PATIENT
  Age: 57 Year
  Sex: Female
  Weight: 84 kg

DRUGS (8)
  1. REMICADE [Suspect]
     Indication: CROHN^S DISEASE
     Dosage: strength: 100 mg
     Route: 042
     Dates: start: 20111126
  2. FOLIUMZUUR [Concomitant]
     Route: 048
  3. METFORMIN [Concomitant]
     Route: 048
  4. BUMETANIDE [Concomitant]
     Route: 048
  5. NOVOMIX [Concomitant]
     Dosage: Novomix 30 penfill inj, 100 e/ml patroon 3ml; 30, 40 and 36 units per day
     Route: 065
  6. METOJECT [Concomitant]
     Dosage: metoject INJVLST 50 mg/ml wwsp 0.5 ml
     Route: 065
  7. OMEPRAZOLE [Concomitant]
     Route: 065
  8. ZOFENOPRIL [Concomitant]
     Route: 048

REACTIONS (3)
  - Neck pain [Recovered/Resolved]
  - Breast pain [Recovered/Resolved]
  - Infusion related reaction [Recovered/Resolved]
